FAERS Safety Report 23689404 (Version 1)
Quarter: 2024Q1

REPORT INFORMATION
  Report Type: Spontaneous
  Country: US (occurrence: US)
  Receive Date: 20240331
  Receipt Date: 20240331
  Transmission Date: 20240410
  Serious: No
  Sender: FDA-Public Use
  Company Number: US-TEVA-VS-3148542

PATIENT
  Age: 50 Year
  Sex: Male

DRUGS (1)
  1. TESTOSTERONE [Suspect]
     Active Substance: TESTOSTERONE
     Indication: Product used for unknown indication
     Route: 065

REACTIONS (7)
  - Drug ineffective [Unknown]
  - Blood testosterone decreased [Unknown]
  - Feeling abnormal [Unknown]
  - Adverse event [Unknown]
  - Quality of life decreased [Unknown]
  - Product administration error [Unknown]
  - Medication error [Unknown]
